FAERS Safety Report 8237978-4 (Version None)
Quarter: 2012Q1

REPORT INFORMATION
  Report Type: 
  Country: None (occurrence: None)
  Receive Date: 20120327
  Receipt Date: 20120316
  Transmission Date: 20120608
  Serious: Yes (Disabling, Other)
  Sender: FDA-Public Use
  Company Number: MX-BRISTOL-MYERS SQUIBB COMPANY-16432502

PATIENT
  Age: 86 Year
  Sex: Female

DRUGS (7)
  1. LANOXIN [Suspect]
     Dosage: 1 DF:1 TABS/24HRS 1/2 TABS/3RD DAY DOSE DECREASED 28FEB12 0.25MG TABS 1/2 TABLET EVERY THIRD DAY
     Route: 048
  2. IRBESARTAN [Suspect]
     Indication: HYPERTENSION
     Dosage: 1DF= 1 TAB
     Route: 048
     Dates: start: 19970101
  3. ACETAMINOPHEN [Suspect]
     Indication: HEADACHE
     Dosage: 500MG TABS 1DF:2 TAB
     Route: 048
  4. GLYBURIDE [Suspect]
     Indication: TYPE 2 DIABETES MELLITUS
     Dosage: 1DF: 1 IN MORNING,1 IN NOON,1 AT NIGHT  TABS
     Route: 048
     Dates: end: 20120228
  5. NIMOTOP [Concomitant]
     Dosage: TABS
     Route: 048
     Dates: start: 20120307
  6. DABEX [Concomitant]
     Indication: TYPE 2 DIABETES MELLITUS
     Dosage: 1DF:2 IN MORNING,1 IN NOON,2 AT NIGHT 500MGTABS
     Route: 048
     Dates: start: 20120228
  7. PLAVIX [Concomitant]
     Indication: THROMBOSIS PROPHYLAXIS
     Dosage: 1 DF: 1 TABS/24HRS 75MG
     Route: 048
     Dates: start: 20120226

REACTIONS (13)
  - DIZZINESS [None]
  - CONFUSIONAL STATE [None]
  - VIITH NERVE PARALYSIS [None]
  - HYPERGLYCAEMIA [None]
  - HEADACHE [None]
  - VISION BLURRED [None]
  - DECREASED APPETITE [None]
  - PAIN IN JAW [None]
  - CEREBROVASCULAR ACCIDENT [None]
  - GAIT DISTURBANCE [None]
  - DIARRHOEA [None]
  - FATIGUE [None]
  - HYPERTENSION [None]
